FAERS Safety Report 7834018-3 (Version None)
Quarter: 2011Q4

REPORT INFORMATION
  Report Type: 
  Country: None (occurrence: None)
  Receive Date: 20111020
  Receipt Date: 20111004
  Transmission Date: 20120403
  Serious: Yes (Life-Threatening, Hospitalization, Other)
  Sender: FDA-Public Use
  Company Number: 2011MA014917

PATIENT
  Age: 54 Year
  Sex: Female

DRUGS (3)
  1. CITALOPRAM HYDROBROMIDE [Suspect]
     Indication: INTENTIONAL OVERDOSE
     Dosage: 20 MG; QD; PO
     Route: 048
  2. ZOPICLONE [Concomitant]
  3. ALCOHOL (ETHANOL) [Suspect]
     Indication: INTENTIONAL OVERDOSE
     Dosage: X1; PO
     Route: 048

REACTIONS (12)
  - BLOOD PRESSURE DECREASED [None]
  - CONVULSION [None]
  - HYPERLACTACIDAEMIA [None]
  - OXYGEN SATURATION DECREASED [None]
  - METABOLIC ACIDOSIS [None]
  - ELECTROCARDIOGRAM QT PROLONGED [None]
  - VENTRICULAR FIBRILLATION [None]
  - VENTRICULAR DYSFUNCTION [None]
  - ALTERED STATE OF CONSCIOUSNESS [None]
  - BUNDLE BRANCH BLOCK LEFT [None]
  - OVERDOSE [None]
  - HYPOKALAEMIA [None]
